FAERS Safety Report 5087687-8 (Version None)
Quarter: 2006Q3

REPORT INFORMATION
  Report Type: 
  Country: None (occurrence: None)
  Receive Date: 20060824
  Receipt Date: 20060801
  Transmission Date: 20061208
  Serious: Yes (Hospitalization)
  Sender: FDA-Public Use
  Company Number: DE-MERCK-0608DEU00006

PATIENT
  Age: 60 Year
  Sex: Male
  Weight: 78 kg

DRUGS (4)
  1. SINGULAIR [Suspect]
     Indication: RHINITIS ALLERGIC
     Route: 048
     Dates: start: 20060628, end: 20060630
  2. SINGULAIR [Suspect]
     Indication: ASTHMA
     Route: 048
     Dates: start: 20060628, end: 20060630
  3. ASPIRIN [Suspect]
     Route: 048
     Dates: start: 20060701, end: 20060701
  4. ALCOHOL [Suspect]
     Route: 065
     Dates: start: 20060630, end: 20060630

REACTIONS (11)
  - ALCOHOL USE [None]
  - BLOOD PRESSURE DECREASED [None]
  - BRADYCARDIA [None]
  - BUNDLE BRANCH BLOCK RIGHT [None]
  - DERMATITIS ALLERGIC [None]
  - DRUG HYPERSENSITIVITY [None]
  - FACE OEDEMA [None]
  - FEELING HOT [None]
  - LEUKOCYTOSIS [None]
  - LIPASE INCREASED [None]
  - PULMONARY HYPERTENSION [None]
